FAERS Safety Report 14140551 (Version 3)
Quarter: 2017Q4

REPORT INFORMATION
  Report Type: Spontaneous
  Country: US (occurrence: US)
  Receive Date: 20171030
  Receipt Date: 20171124
  Transmission Date: 20180321
  Serious: No
  Sender: FDA-Public Use
  Company Number: US-PFIZER INC-2017463100

PATIENT
  Age: 54 Year
  Sex: Female
  Weight: 62.6 kg

DRUGS (3)
  1. NICOTROL [Suspect]
     Active Substance: NICOTINE
     Dosage: 1 DF, AS NEEDED (INHALE ONE PUFF AS NEEDED), (ONE CARTRIDGE AS NEEDED)
     Route: 055
     Dates: start: 201705
  2. NICOTROL [Suspect]
     Active Substance: NICOTINE
     Indication: SMOKING CESSATION THERAPY
     Dosage: UNK (5 A DAY 10MG-4MG DELIVERED)
     Route: 055
     Dates: start: 201704, end: 2017
  3. ZANTAC [Concomitant]
     Active Substance: RANITIDINE HYDROCHLORIDE
     Dosage: UNK

REACTIONS (3)
  - Product quality issue [Unknown]
  - Drug ineffective [Unknown]
  - Poor quality drug administered [Unknown]

NARRATIVE: CASE EVENT DATE: 2017
